FAERS Safety Report 8365285-8 (Version None)
Quarter: 2012Q2

REPORT INFORMATION
  Report Type: 
  Country: None (occurrence: None)
  Receive Date: 20120516
  Receipt Date: 20120511
  Transmission Date: 20120825
  Serious: Yes (Other)
  Sender: FDA-Public Use
  Company Number: US-PFIZER INC-2011122177

PATIENT
  Sex: Male
  Weight: 82.993 kg

DRUGS (18)
  1. LYRICA [Suspect]
     Indication: DIABETIC NEUROPATHY
     Dosage: 150 MG, 2X/DAY
     Route: 048
     Dates: start: 20110101
  2. HYDROCHLOROTHIAZIDE [Concomitant]
     Dosage: UNK, 1X/DAY
  3. LISINOPRIL [Concomitant]
     Dosage: 5 MG, 1X/DAY
  4. NEURONTIN [Suspect]
     Dosage: 600 MG, 2X/DAY
     Route: 048
  5. NEURONTIN [Suspect]
     Dosage: 400 MG, 2X/DAY
     Route: 048
  6. ATENOLOL [Concomitant]
     Dosage: 50 MG, UNK
  7. LANTUS [Concomitant]
     Dosage: 87 IU, 1X/DAY
  8. VITAMIN B COMPLEX CAP [Concomitant]
     Dosage: UNK, 2X/DAY
  9. VITAMIN D [Concomitant]
     Dosage: 50000 IU, WEEKLY
  10. NEURONTIN [Suspect]
     Dosage: UNK
     Route: 048
     Dates: end: 20110601
  11. ZOCOR [Concomitant]
     Indication: BLOOD CHOLESTEROL INCREASED
     Dosage: 20 MG, UNK
  12. NOVOLOG [Concomitant]
     Dosage: 150 IU, 1X/DAY
  13. LANTUS [Concomitant]
     Dosage: UNK
  14. NOVOLOG [Concomitant]
     Dosage: UNK
  15. ACETYLSALICYLIC ACID [Concomitant]
     Dosage: 81 MG, 1X/DAY
  16. OMEPRAZOLE [Concomitant]
     Dosage: UNK, 1X/DAY
  17. NEURONTIN [Suspect]
     Indication: DIABETIC NEUROPATHY
     Dosage: 200 MG, 2X/DAY
     Route: 048
     Dates: start: 20090101
  18. ATENOLOL [Concomitant]
     Dosage: 50 MG, 1X/DAY

REACTIONS (4)
  - SUICIDAL IDEATION [None]
  - HYPERKALAEMIA [None]
  - OEDEMA PERIPHERAL [None]
  - AGITATION [None]
